FAERS Safety Report 6577022-8 (Version None)
Quarter: 2010Q1

REPORT INFORMATION
  Report Type: 
  Country: None (occurrence: None)
  Receive Date: 20100210
  Receipt Date: 20100201
  Transmission Date: 20100710
  Serious: Yes (Other)
  Sender: FDA-Public Use
  Company Number: US-BAYER-201014672GPV

PATIENT
  Age: 43 Year
  Sex: Male

DRUGS (1)
  1. MAGNEVIST [Suspect]
     Indication: NUCLEAR MAGNETIC RESONANCE IMAGING
     Dosage: 155 ML IN 5 DOSES OVER 44 MONTHS
     Route: 042

REACTIONS (3)
  - NEPHROCALCINOSIS [None]
  - NEPHROGENIC SYSTEMIC FIBROSIS [None]
  - VENA CAVA THROMBOSIS [None]
